FAERS Safety Report 21116577 (Version 3)
Quarter: 2022Q3

REPORT INFORMATION
  Report Type: Report from Study
  Country: US (occurrence: US)
  Receive Date: 20220722
  Receipt Date: 20220730
  Transmission Date: 20221026
  Serious: No
  Sender: FDA-Public Use
  Company Number: US-AMGEN-USASL2022116677

PATIENT
  Age: 52 Year
  Sex: Female
  Weight: 108 kg

DRUGS (3)
  1. NEULASTA [Suspect]
     Active Substance: PEGFILGRASTIM
     Indication: Product used for unknown indication
     Dosage: UNK
     Route: 065
     Dates: start: 20220503
  2. NEULASTA [Suspect]
     Active Substance: PEGFILGRASTIM
     Dosage: 600 MILLIGRAM
     Route: 065
     Dates: start: 20220614
  3. NEULASTA [Suspect]
     Active Substance: PEGFILGRASTIM
     Dosage: UNK
     Route: 065
     Dates: start: 20220705

REACTIONS (2)
  - Incorrect disposal of product [Unknown]
  - Device adhesion issue [Unknown]

NARRATIVE: CASE EVENT DATE: 20220706
